FAERS Safety Report 6917219-8 (Version None)
Quarter: 2010Q3

REPORT INFORMATION
  Report Type: 
  Country: None (occurrence: None)
  Receive Date: 20100804
  Receipt Date: 20100721
  Transmission Date: 20110219
  Serious: Yes (Hospitalization)
  Sender: FDA-Public Use
  Company Number: 7011975

PATIENT
  Age: 61 Year
  Sex: Female

DRUGS (8)
  1. REBIF [Suspect]
     Indication: RELAPSING-REMITTING MULTIPLE SCLEROSIS
     Dosage: 22 MCG, 3 IN 1 WK, SUBCUTANEOUS
     Route: 058
     Dates: start: 20061201, end: 20100101
  2. HIDANTAL (FENITOIN)(PHENYTOIN) [Concomitant]
  3. PURAN T4 (LEVOTHYROCINE)(LEVOTHYROXINE SODIUM) [Concomitant]
  4. COMPLEX (NICOTINAN. W/PYRIDOXI. HCL/RIBOFL./THIAM. [Concomitant]
  5. LOVAZA [Concomitant]
  6. VITAMINE D (ERGOCALCIFEROL) [Concomitant]
  7. IODINE SOLUTION (IODINE) [Concomitant]
  8. NATURETTI (BENDROFLUMETHIAZIDE) [Concomitant]

REACTIONS (3)
  - INTESTINAL OBSTRUCTION [None]
  - MULTIPLE SCLEROSIS [None]
  - SEPSIS [None]
